FAERS Safety Report 5627573-5 (Version None)
Quarter: 2008Q1

REPORT INFORMATION
  Report Type: 
  Country: None (occurrence: None)
  Receive Date: 20080215
  Receipt Date: 20080114
  Transmission Date: 20080703
  Serious: No
  Sender: FDA-Public Use
  Company Number: A0703036A

PATIENT
  Age: 59 Year
  Sex: Female

DRUGS (7)
  1. COREG CR [Suspect]
     Dosage: 20MG PER DAY
     Route: 048
  2. GLIPIZIDE [Concomitant]
  3. METFORMIN HCL [Concomitant]
  4. ACTOS [Concomitant]
  5. NORVASC [Concomitant]
  6. ZETIA [Concomitant]
  7. UNKNOWN MEDICATION [Concomitant]

REACTIONS (1)
  - BLOOD GLUCOSE INCREASED [None]
